FAERS Safety Report 25145910 (Version 1)
Quarter: 2025Q2

REPORT INFORMATION
  Report Type: Other
  Country: US (occurrence: US)
  Receive Date: 20250401
  Receipt Date: 20250401
  Transmission Date: 20250717
  Serious: Yes (Hospitalization, Other)
  Sender: RENATA LIMITED
  Company Number: US-Renata Limited-2174016

PATIENT
  Age: 38 Year
  Sex: Male

DRUGS (3)
  1. METOPROLOL TARTRATE [Suspect]
     Active Substance: METOPROLOL TARTRATE
     Indication: Tachycardia
  2. METOPROLOL TARTRATE [Suspect]
     Active Substance: METOPROLOL TARTRATE
     Indication: Electrocardiogram ST segment depression
  3. ESMOLOL [Concomitant]
     Active Substance: ESMOLOL HYDROCHLORIDE

REACTIONS (2)
  - Hyperkalaemia [Recovering/Resolving]
  - Product use in unapproved indication [Unknown]
